FAERS Safety Report 24089257 (Version 1)
Quarter: 2024Q3

REPORT INFORMATION
  Report Type: Report from Study
  Country: RU (occurrence: None)
  Receive Date: 20240715
  Receipt Date: 20240715
  Transmission Date: 20241016
  Serious: Yes (Hospitalization)
  Sender: ASTRAZENECA
  Company Number: 2019SF05208

PATIENT
  Age: 81 Year
  Sex: Male
  Weight: 90 kg

DRUGS (1)
  1. BRILINTA [Suspect]
     Active Substance: TICAGRELOR
     Indication: Myocardial infarction
     Route: 048

REACTIONS (1)
  - Abdominal pain upper [Not Recovered/Not Resolved]
